FAERS Safety Report 6301681-8 (Version None)
Quarter: 2009Q3

REPORT INFORMATION
  Report Type: 
  Country: None (occurrence: None)
  Receive Date: 20090807
  Receipt Date: 20090730
  Transmission Date: 20100115
  Serious: Yes (Hospitalization)
  Sender: FDA-Public Use
  Company Number: PHHY2009CA31949

PATIENT
  Sex: Male

DRUGS (1)
  1. DIOVAN HCT [Suspect]
     Dosage: 1 DF (160/12.5 MG) PER DAY
     Route: 048
     Dates: start: 20040801

REACTIONS (1)
  - CEREBROVASCULAR ACCIDENT [None]
